FAERS Safety Report 9544038 (Version 1)
Quarter: 2013Q3

REPORT INFORMATION
  Report Type: Spontaneous
  Country: US (occurrence: US)
  Receive Date: 20130923
  Receipt Date: 20130923
  Transmission Date: 20140515
  Serious: Yes (Other)
  Sender: FDA-Public Use
  Company Number: PHHY2013US103887

PATIENT
  Age: 34 Year
  Sex: Female

DRUGS (1)
  1. CARBAMAZEPINE [Suspect]
     Indication: OFF LABEL USE
     Dosage: 400 MG, DAILY

REACTIONS (3)
  - Photophobia [Unknown]
  - Lacrimation increased [Unknown]
  - Eye movement disorder [Unknown]
